FAERS Safety Report 4279124-8 (Version None)
Quarter: 2004Q1

REPORT INFORMATION
  Report Type: 
  Country: None (occurrence: None)
  Receive Date: 20040122
  Receipt Date: 20040106
  Transmission Date: 20041129
  Serious: Yes (Hospitalization)
  Sender: FDA-Public Use
  Company Number: 110071

PATIENT
  Age: 55 Year
  Sex: Female
  Weight: 218 kg

DRUGS (5)
  1. AVONEX [Suspect]
     Indication: MULTIPLE SCLEROSIS
     Dosage: 30 MCG QW IM
     Dates: start: 19970218, end: 20031101
  2. AVONEX [Suspect]
     Indication: MULTIPLE SCLEROSIS
     Dosage: 30 MCG QW IM
     Dates: start: 20031101
  3. EVISTA [Concomitant]
  4. WELLBUTRIN [Concomitant]
  5. MULTIVITAMNS [Concomitant]

REACTIONS (3)
  - INFLUENZA LIKE ILLNESS [None]
  - MALIGNANT OMENTUM NEOPLASM [None]
  - OVARIAN CANCER [None]
